FAERS Safety Report 8599492-6 (Version None)
Quarter: 2012Q3

REPORT INFORMATION
  Report Type: 
  Country: None (occurrence: None)
  Receive Date: 20120816
  Receipt Date: 20120806
  Transmission Date: 20120928
  Serious: No
  Sender: FDA-Public Use
  Company Number: US-ASTRAZENECA-2012SE55407

PATIENT
  Age: 54 Year
  Sex: Female
  Weight: 77.1 kg

DRUGS (3)
  1. PANTOPRAZOLE [Concomitant]
  2. NEXIUM [Suspect]
     Indication: GASTROOESOPHAGEAL REFLUX DISEASE
     Route: 048
  3. ALEVE [Concomitant]
     Indication: HEADACHE

REACTIONS (4)
  - DRUG DOSE OMISSION [None]
  - THERAPEUTIC RESPONSE UNEXPECTED [None]
  - DIARRHOEA [None]
  - HEADACHE [None]
